FAERS Safety Report 9122611 (Version 1)
Quarter: 2013Q1

REPORT INFORMATION
  Report Type: Spontaneous
  Country: US (occurrence: None)
  Receive Date: 20130130
  Receipt Date: 20130130
  Transmission Date: 20140127
  Serious: Yes (Death)
  Sender: FDA-Public Use
  Company Number: B0859701A

PATIENT
  Age: 60 Year
  Sex: Female

DRUGS (13)
  1. AMLODIPINE [Suspect]
     Dosage: UNK / UNK / ORAL?UNK
     Route: 048
  2. FLUOXETINE [Suspect]
     Dosage: UNK / UNK / ORAL?UNK
     Route: 048
  3. SUMATRIPTAN SUCCINATE [Suspect]
     Dosage: UNK / UNK / ORAL?UNK
     Route: 048
  4. PARACETAMOL [Suspect]
     Dosage: UNK / UNK / ORAL?UNK
     Route: 048
  5. TIZANIDINE [Suspect]
     Dosage: UNK / UNK / ORAL?UNK
     Route: 048
  6. ARIPIPRAZOLE [Suspect]
     Dosage: UNK / UNK / ORAL?UNK
     Route: 048
  7. HYDROCODONE [Suspect]
     Dosage: UNK / UNK / ORAL?UNK
     Route: 048
  8. OXYCODONE [Suspect]
     Dosage: UNK / UNK / ORAL?UNK
     Route: 048
  9. AMITRIPTYLINE [Suspect]
     Dosage: UNK / UNK / ORAL?UNK
     Route: 048
  10. ZOLPIDEM [Suspect]
     Dosage: UNK / UNK / ORAL?UNK
     Route: 048
  11. HYOSCYAMINE [Suspect]
     Dosage: UNK / UNK / ORAL?UNK
     Route: 048
  12. HYDROCHLOROTHIAZIDE [Suspect]
     Dosage: UNK / UNK / ORAL?UNK
     Route: 048
  13. SIMVASTATIN [Suspect]
     Dosage: UNK / UNK / ORAL?UNK
     Route: 048

REACTIONS (2)
  - Completed suicide [None]
  - Cardio-respiratory arrest [None]
